FAERS Safety Report 10169823 (Version 2)
Quarter: 2014Q2

REPORT INFORMATION
  Report Type: Spontaneous
  Country: JP (occurrence: JP)
  Receive Date: 20140513
  Receipt Date: 20140625
  Transmission Date: 20141212
  Serious: Yes (Other)
  Sender: FDA-Public Use
  Company Number: JP-PFIZER INC-2014129999

PATIENT
  Sex: Female

DRUGS (2)
  1. JZOLOFT [Suspect]
     Indication: IRRITABILITY
     Dosage: UNK
     Route: 048
     Dates: start: 201304
  2. JZOLOFT [Suspect]
     Indication: SOCIAL PHOBIA

REACTIONS (7)
  - Self-injurious ideation [Unknown]
  - Suicidal ideation [Unknown]
  - Irritability [Unknown]
  - Nervousness [Unknown]
  - Feeling abnormal [Unknown]
  - Asthenia [Unknown]
  - Fear [Unknown]
